FAERS Safety Report 19846215 (Version 1)
Quarter: 2021Q3

REPORT INFORMATION
  Report Type: Spontaneous
  Country: IL (occurrence: IL)
  Receive Date: 20210916
  Receipt Date: 20210916
  Transmission Date: 20211014
  Serious: Yes (Death, Hospitalization, Other)
  Sender: FDA-Public Use
  Company Number: IL-009507513-2109ISR003170

PATIENT
  Age: 67 Year
  Sex: Male

DRUGS (4)
  1. TAXOL [Suspect]
     Active Substance: PACLITAXEL
     Indication: SQUAMOUS CELL CARCINOMA OF LUNG
     Dosage: UNK
     Dates: start: 201801
  2. KEYTRUDA [Suspect]
     Active Substance: PEMBROLIZUMAB
     Dosage: UNK
     Dates: start: 2019
  3. CARBOPLATIN. [Suspect]
     Active Substance: CARBOPLATIN
     Indication: SQUAMOUS CELL CARCINOMA OF LUNG
     Dosage: UNK
     Dates: start: 201801
  4. KEYTRUDA [Suspect]
     Active Substance: PEMBROLIZUMAB
     Indication: SQUAMOUS CELL CARCINOMA OF LUNG
     Dosage: UNK
     Dates: start: 201809, end: 2018

REACTIONS (9)
  - Sepsis [Fatal]
  - Eyelid ptosis [Recovered/Resolved]
  - Liver function test increased [Recovered/Resolved]
  - Pneumonia [Fatal]
  - Weight decreased [Recovering/Resolving]
  - Asthenia [Recovering/Resolving]
  - Extraocular muscle paresis [Recovered/Resolved]
  - Malignant neoplasm progression [Unknown]
  - Dyspnoea [Recovering/Resolving]

NARRATIVE: CASE EVENT DATE: 2018
